FAERS Safety Report 6851451-7 (Version None)
Quarter: 2010Q3

REPORT INFORMATION
  Report Type: 
  Country: None (occurrence: None)
  Receive Date: 20100717
  Receipt Date: 20080229
  Transmission Date: 20110219
  Serious: Yes (Other)
  Sender: FDA-Public Use
  Company Number: US-PFIZER INC-2008006407

PATIENT

DRUGS (8)
  1. CHANTIX [Suspect]
     Indication: NICOTINE DEPENDENCE
     Dates: start: 20070201
  2. HYPNOTICS AND SEDATIVES [Suspect]
  3. ANALGESICS [Suspect]
  4. ALLEGRA D 24 HOUR [Concomitant]
     Indication: HYPERSENSITIVITY
  5. HYDROXYZINE [Concomitant]
     Indication: PRURITUS
  6. NEXIUM [Concomitant]
     Indication: GASTROOESOPHAGEAL REFLUX DISEASE
  7. VYTORIN [Concomitant]
     Indication: HYPERLIPIDAEMIA
  8. WARFARIN SODIUM [Concomitant]
     Indication: PULMONARY EMBOLISM

REACTIONS (3)
  - MAJOR DEPRESSION [None]
  - MULTIPLE DRUG OVERDOSE INTENTIONAL [None]
  - SUICIDE ATTEMPT [None]
